FAERS Safety Report 4661500-2 (Version None)
Quarter: 2005Q2

REPORT INFORMATION
  Report Type: 
  Country: None (occurrence: None)
  Receive Date: 20050512
  Receipt Date: 20050512
  Transmission Date: 20051028
  Serious: Yes (Hospitalization)
  Sender: FDA-Public Use
  Company Number: None

PATIENT
  Sex: Male
  Weight: 77.5651 kg

DRUGS (1)
  1. ONTAK [Suspect]
     Indication: NON-HODGKIN'S LYMPHOMA
     Dosage: 1464 MCG    IV    INTRAVENOU
     Route: 042
     Dates: start: 20050405, end: 20050409

REACTIONS (7)
  - BLOOD PRESSURE IMMEASURABLE [None]
  - FEELING HOT [None]
  - INFUSION RELATED REACTION [None]
  - OXYGEN SATURATION IMMEASURABLE [None]
  - PRURITUS [None]
  - PULSE ABSENT [None]
  - VOMITING [None]
